APPROVED DRUG PRODUCT: LEVOCARNITINE
Active Ingredient: LEVOCARNITINE
Strength: 330MG
Dosage Form/Route: TABLET;ORAL
Application: A216384 | Product #001 | TE Code: AB
Applicant: NOVITIUM PHARMA LLC
Approved: Dec 9, 2022 | RLD: No | RS: No | Type: RX